FAERS Safety Report 25930061 (Version 1)
Quarter: 2025Q4

REPORT INFORMATION
  Report Type: Spontaneous
  Country: US (occurrence: None)
  Receive Date: 20251015
  Receipt Date: 20251015
  Transmission Date: 20260117
  Serious: Yes (Life-Threatening, Hospitalization, Other)
  Sender: FDA-CTU
  Company Number: None

PATIENT
  Age: 31 Year
  Sex: Female
  Weight: 65.25 kg

DRUGS (7)
  1. DEXTROAMPHETAMINE SACCHARATE, AMPHETAMINE ASPARTATE, DEXTROAMPHETAMINE [Suspect]
     Active Substance: AMPHETAMINE ASPARTATE\AMPHETAMINE SULFATE\DEXTROAMPHETAMINE SACCHARATE\DEXTROAMPHETAMINE SULFATE
     Indication: Drug dispensed to wrong patient
     Dosage: 1 TABLET DAILY ORAL ?
     Route: 048
  2. Sertraline 50 mg (Zoloft) [Concomitant]
  3. SPIRONOLACTONE [Concomitant]
     Active Substance: SPIRONOLACTONE
  4. Junel FE 1.5/30 mg [Concomitant]
  5. Vitamin C (daily) [Concomitant]
  6. Vitamin B12 (daily) [Concomitant]
  7. Vitamin D (daily) [Concomitant]

REACTIONS (13)
  - Drug dispensed to wrong patient [None]
  - Wrong product administered [None]
  - Accidental exposure to product [None]
  - Hallucination [None]
  - Confusional state [None]
  - Emotional distress [None]
  - Thinking abnormal [None]
  - Suicidal ideation [None]
  - Fall [None]
  - Ligament sprain [None]
  - Contusion [None]
  - Product dispensing error [None]
  - Psychological trauma [None]

NARRATIVE: CASE EVENT DATE: 20251001
